FAERS Safety Report 11659362 (Version 1)
Quarter: 2015Q4

REPORT INFORMATION
  Report Type: Spontaneous
  Country: US (occurrence: None)
  Receive Date: 20151023
  Receipt Date: 20151023
  Transmission Date: 20160304
  Serious: No
  Sender: FDA-Public Use
  Company Number: None

PATIENT
  Age: 27 Year
  Sex: Female

DRUGS (2)
  1. EXJADE [Concomitant]
     Active Substance: DEFERASIROX
     Route: 048
  2. EXJADE [Suspect]
     Active Substance: DEFERASIROX
     Indication: CHELATION THERAPY
     Route: 048
     Dates: start: 20150430

REACTIONS (2)
  - Pregnancy [None]
  - Exposure during pregnancy [None]
